FAERS Safety Report 4754137-8 (Version None)
Quarter: 2005Q3

REPORT INFORMATION
  Report Type: 
  Country: None (occurrence: None)
  Receive Date: 20050825
  Receipt Date: 20050105
  Transmission Date: 20060218
  Serious: Yes (Other)
  Sender: FDA-Public Use
  Company Number: HQWYE515511JAN05

PATIENT
  Age: 35 Year
  Sex: Female
  Weight: 45.4 kg

DRUGS (2)
  1. CHILDREN'S ADVIL [Suspect]
     Indication: HEADACHE
     Dosage: TWO TEASPOONS ONE TIME, ORAL
     Route: 048
     Dates: start: 20050105, end: 20050105
  2. CHILDREN'S ADVIL [Suspect]
     Indication: PYREXIA
     Dosage: TWO TEASPOONS ONE TIME, ORAL
     Route: 048
     Dates: start: 20050105, end: 20050105

REACTIONS (4)
  - COUGH [None]
  - DYSPHAGIA [None]
  - RETCHING [None]
  - THROAT TIGHTNESS [None]
